FAERS Safety Report 11980061 (Version 1)
Quarter: 2016Q1

REPORT INFORMATION
  Report Type: Report from Study
  Country: US (occurrence: US)
  Receive Date: 20160129
  Receipt Date: 20160129
  Transmission Date: 20160526
  Serious: Yes (Hospitalization, Other)
  Sender: FDA-Public Use
  Company Number: US-ABBVIE-15K-163-1406019-00

PATIENT
  Age: 51 Year
  Sex: Female
  Weight: 72.64 kg

DRUGS (5)
  1. HUMIRA [Suspect]
     Active Substance: ADALIMUMAB
     Route: 058
     Dates: start: 201505, end: 201511
  2. ZYRTEC [Concomitant]
     Active Substance: CETIRIZINE HYDROCHLORIDE
     Indication: SEASONAL ALLERGY
  3. HUMIRA [Suspect]
     Active Substance: ADALIMUMAB
     Indication: PSORIATIC ARTHROPATHY
     Route: 058
  4. CLINDAMYCIN [Suspect]
     Active Substance: CLINDAMYCIN\CLINDAMYCIN PHOSPHATE
     Indication: TOOTH INFECTION
     Route: 065
  5. MORPHINE [Concomitant]
     Active Substance: MORPHINE
     Indication: ARTHRALGIA

REACTIONS (8)
  - Sepsis [Recovered/Resolved]
  - Pneumonia [Recovered/Resolved]
  - Tooth infection [Not Recovered/Not Resolved]
  - Drug ineffective [Unknown]
  - Arthralgia [Unknown]
  - Psoriasis [Unknown]
  - Tooth fracture [Not Recovered/Not Resolved]
  - Urticaria [Recovered/Resolved]

NARRATIVE: CASE EVENT DATE: 201409
